FAERS Safety Report 6836643-5 (Version None)
Quarter: 2010Q3

REPORT INFORMATION
  Report Type: 
  Country: None (occurrence: None)
  Receive Date: 20100713
  Receipt Date: 20100701
  Transmission Date: 20110219
  Serious: Yes (Other)
  Sender: FDA-Public Use
  Company Number: KR-PFIZER INC-2010079862

PATIENT
  Age: 60 Year
  Sex: Female

DRUGS (2)
  1. XALATAN [Suspect]
     Indication: GLAUCOMA
     Dosage: 1 DROP IN EVENING, 1X/DAY
     Route: 047
     Dates: start: 20070101
  2. ALPHAGAN [Suspect]
     Dosage: UNK
     Route: 047

REACTIONS (3)
  - ERYTHEMA [None]
  - SKIN CHAPPED [None]
  - SKIN EXFOLIATION [None]
